FAERS Safety Report 7096963-9 (Version None)
Quarter: 2010Q4

REPORT INFORMATION
  Report Type: 
  Country: None (occurrence: None)
  Receive Date: 20101111
  Receipt Date: 20100326
  Transmission Date: 20110411
  Serious: No
  Sender: FDA-Public Use
  Company Number: US-KINGPHARMUSA00001-K201000379

PATIENT
  Sex: Female

DRUGS (3)
  1. FLECTOR [Suspect]
     Indication: PAIN
     Dosage: UNK PATCH, UNK
     Route: 061
     Dates: start: 20091101, end: 20100301
  2. MUSCLE RELAXANTS [Concomitant]
     Indication: PAIN
     Dosage: UNK
  3. ANALGESICS [Concomitant]
     Indication: PAIN
     Dosage: UNK

REACTIONS (3)
  - APPLICATION SITE ERYTHEMA [None]
  - APPLICATION SITE IRRITATION [None]
  - APPLICATION SITE VESICLES [None]
